FAERS Safety Report 5426347-8 (Version None)
Quarter: 2007Q3

REPORT INFORMATION
  Report Type: 
  Country: None (occurrence: None)
  Receive Date: 20070827
  Receipt Date: 20070820
  Transmission Date: 20080115
  Serious: Yes (Other)
  Sender: FDA-Public Use
  Company Number: PHBS2007JP13976

PATIENT
  Age: 51 Year
  Sex: Male

DRUGS (2)
  1. VOLTAREN [Suspect]
     Indication: GINGIVITIS
     Route: 054
  2. VOLTAREN [Suspect]
     Route: 048

REACTIONS (2)
  - DRUG INEFFECTIVE [None]
  - LOSS OF CONSCIOUSNESS [None]
